FAERS Safety Report 4840944-X (Version None)
Quarter: 2005Q4

REPORT INFORMATION
  Report Type: 
  Country: None (occurrence: None)
  Receive Date: 20051130
  Receipt Date: 20050801
  Transmission Date: 20060501
  Serious: No
  Sender: FDA-Public Use
  Company Number: US-BRISTOL-MYERS SQUIBB COMPANY-13058417

PATIENT
  Age: 18 Year
  Sex: Female
  Weight: 77 kg

DRUGS (2)
  1. ABILIFY [Suspect]
     Indication: TIC
     Dates: start: 20050101, end: 20050729
  2. CYMBALTA [Concomitant]

REACTIONS (1)
  - EYE ROLLING [None]
